FAERS Safety Report 8307118-1 (Version None)
Quarter: 2012Q2

REPORT INFORMATION
  Report Type: 
  Country: None (occurrence: None)
  Receive Date: 20120424
  Receipt Date: 20120416
  Transmission Date: 20120825
  Serious: Yes (Hospitalization)
  Sender: FDA-Public Use
  Company Number: SE-TEVA-331755ISR

PATIENT
  Age: 55 Year
  Sex: Female

DRUGS (4)
  1. RAMIPRIL [Suspect]
     Route: 065
  2. SIMVASTATIN [Concomitant]
     Route: 065
  3. METFORMIN HCL [Suspect]
     Indication: TYPE 2 DIABETES MELLITUS
     Route: 065
  4. ATENOLOL [Concomitant]
     Route: 065

REACTIONS (3)
  - LACTIC ACIDOSIS [None]
  - RENAL FAILURE ACUTE [None]
  - HYPERKALAEMIA [None]
